FAERS Safety Report 4492145-5 (Version None)
Quarter: 2004Q4

REPORT INFORMATION
  Report Type: 
  Country: None (occurrence: None)
  Receive Date: 20041101
  Receipt Date: 20041019
  Transmission Date: 20050328
  Serious: Yes (Other)
  Sender: FDA-Public Use
  Company Number: 163-20785-04100569

PATIENT
  Age: 73 Year
  Sex: Male
  Weight: 107.9561 kg

DRUGS (6)
  1. THALOMID [Suspect]
     Indication: MULTIPLE MYELOMA
     Dosage: 400 MG, DAILY, ORAL
     Route: 048
     Dates: start: 20010730, end: 20040701
  2. THALOMID [Suspect]
     Indication: MULTIPLE MYELOMA
  3. ZOMETA [Suspect]
     Indication: MULTIPLE MYELOMA
     Dosage: 4 MG, Q MONTH, UNKNOWN
  4. LANOXIN [Concomitant]
  5. TIAZAC [Concomitant]
  6. ANTICOAGULATION [Concomitant]

REACTIONS (3)
  - GALLBLADDER CANCER [None]
  - NEUROPATHY [None]
  - WEIGHT DECREASED [None]
